FAERS Safety Report 16782070 (Version 2)
Quarter: 2019Q3

REPORT INFORMATION
  Report Type: Spontaneous
  Country: US (occurrence: US)
  Receive Date: 20190906
  Receipt Date: 20190917
  Transmission Date: 20191005
  Serious: No
  Sender: FDA-Public Use
  Company Number: US-JNJFOC-20190900800

PATIENT
  Sex: Male

DRUGS (4)
  1. BENGAY ULTRA STRENGTH CREAM / TUBE [Concomitant]
     Indication: BACK PAIN
     Dosage: APPLIED LIBERALLY ON LOWER BACK
     Route: 061
  2. TYLENOL WITH CODEINE [Suspect]
     Active Substance: ACETAMINOPHEN\CODEINE PHOSPHATE
     Indication: BACK PAIN
     Dosage: AS NEEDED
     Route: 065
  3. ADVIL LIQUI-GELS [Concomitant]
     Active Substance: IBUPROFEN
     Indication: BACK PAIN
     Dosage: 1 TO 2 PILLS AS NEEDED
     Route: 065
  4. TRAMADOL HYDROCHLORIDE. [Concomitant]
     Active Substance: TRAMADOL HYDROCHLORIDE
     Indication: BACK PAIN
     Dosage: 2 TO 3 TABLETS WHEN NEEDED

REACTIONS (1)
  - Therapeutic product effect variable [Unknown]
